FAERS Safety Report 7820219-7 (Version None)
Quarter: 2011Q4

REPORT INFORMATION
  Report Type: 
  Country: None (occurrence: None)
  Receive Date: 20111018
  Receipt Date: 20111004
  Transmission Date: 20120403
  Serious: Yes (Other)
  Sender: FDA-Public Use
  Company Number: BR-ELI_LILLY_AND_COMPANY-BR201110001370

PATIENT
  Age: 80 Year
  Sex: Female

DRUGS (2)
  1. CYMBALTA [Suspect]
     Dosage: UNK, EACH MORNING
     Route: 065
  2. AMITRIPTILINA [Concomitant]
     Dosage: UNK, EACH EVENING
     Route: 065

REACTIONS (6)
  - CEREBRAL ISCHAEMIA [None]
  - NAUSEA [None]
  - CONFUSIONAL STATE [None]
  - BLINDNESS [None]
  - VOMITING [None]
  - DRUG INTERACTION [None]
